FAERS Safety Report 9028117 (Version 2)
Quarter: 2013Q1

REPORT INFORMATION
  Report Type: Spontaneous
  Country: US (occurrence: US)
  Receive Date: 20130123
  Receipt Date: 20130131
  Transmission Date: 20140127
  Serious: Yes (Hospitalization)
  Sender: FDA-Public Use
  Company Number: US-BAYER-2013-006778

PATIENT
  Age: 35 Year
  Sex: Female
  Weight: 83.9 kg

DRUGS (24)
  1. YASMIN [Suspect]
  2. XANAX [Concomitant]
     Dosage: 10 MG, PRN
  3. ENDOCET [Concomitant]
     Dosage: 5/325 MG PRN
  4. PROMETHAZINE [Concomitant]
     Dosage: 25 MG, PRN
  5. TYLENOL PM [Concomitant]
     Indication: HEADACHE
     Dosage: 1 AT NIGHT
  6. ACIPHEX [Concomitant]
     Indication: GASTROOESOPHAGEAL REFLUX DISEASE
     Dosage: 5 MG, QD
  7. NASONEX [Concomitant]
     Indication: MULTIPLE ALLERGIES
     Dosage: 2 SPRAYS EACH NOSTRIL QD
  8. RESPIRATORY SYSTEM [Concomitant]
     Indication: MULTIPLE ALLERGIES
     Dosage: ONCE DAILY
  9. FLONASE [Concomitant]
     Indication: MULTIPLE ALLERGIES
     Dosage: 50 ?G, BID
  10. PATANOL [Concomitant]
     Dosage: 2 DROPS BID
  11. DEPO-PROVERA [Concomitant]
  12. CIPRO [Concomitant]
  13. LORTAB [Concomitant]
  14. BACTROBAN [Concomitant]
     Dosage: UNK
     Dates: start: 20060601
  15. LIDOCAINE HYDROCHLORIDE/EPINEPHRINE [Concomitant]
     Dosage: UNK
     Dates: start: 20060601
  16. ZOFRAN [Concomitant]
     Indication: NAUSEA
     Dosage: 4 MG, UNK
     Route: 042
     Dates: start: 20060601
  17. DILAUDID [Concomitant]
     Indication: PAIN
     Dosage: 1 MG, UNK
     Route: 042
     Dates: start: 20060601
  18. PHENERGAN [Concomitant]
     Indication: NAUSEA
     Dosage: 12.5 MG, UNK
     Route: 042
     Dates: start: 20060601
  19. PHENERGAN [Concomitant]
     Indication: VOMITING
  20. PERCOCET [Concomitant]
     Indication: PAIN
     Dosage: 5 MG, UNK
     Route: 048
     Dates: start: 20060601
  21. ADRENERGICS, INHALANTS [Concomitant]
     Indication: MULTIPLE ALLERGIES
     Dosage: 3-4 DROPS DAILY
  22. AUGMENTIN XR [Concomitant]
     Dosage: 1000 MG, DAILY
  23. OXYCODONE/APAP [Concomitant]
  24. ALPRAZOLAM [Concomitant]
     Dosage: 0.25 MG, UNK

REACTIONS (2)
  - Deep vein thrombosis [None]
  - Deep vein thrombosis [None]
